FAERS Safety Report 15606848 (Version 1)
Quarter: 2018Q4

REPORT INFORMATION
  Report Type: Spontaneous
  Country: US (occurrence: US)
  Receive Date: 20181111
  Receipt Date: 20181111
  Transmission Date: 20190205
  Serious: Yes (Life-Threatening, Hospitalization)
  Sender: FDA-Public Use
  Company Number: None

PATIENT
  Age: 72 Year
  Sex: Male

DRUGS (1)
  1. HALDOL [Suspect]
     Active Substance: HALOPERIDOL
     Indication: AGITATION
     Dates: start: 20181104, end: 20181105

REACTIONS (3)
  - Renal failure [None]
  - Blood pressure fluctuation [None]
  - Hypersomnia [None]

NARRATIVE: CASE EVENT DATE: 20181105
